FAERS Safety Report 22090089 (Version 1)
Quarter: 2023Q1

REPORT INFORMATION
  Report Type: Spontaneous
  Country: DE (occurrence: None)
  Receive Date: 20230313
  Receipt Date: 20230313
  Transmission Date: 20230418
  Serious: Yes (Other)
  Sender: FDA-Public Use
  Company Number: None

PATIENT
  Age: 40 Year
  Sex: Female

DRUGS (2)
  1. BACLOFEN [Suspect]
     Active Substance: BACLOFEN
     Indication: Tardive dyskinesia
  2. OXAZEPAM [Suspect]
     Active Substance: OXAZEPAM
     Indication: Tardive dyskinesia

REACTIONS (8)
  - Drug ineffective [None]
  - Dystonia [None]
  - Dyskinesia [None]
  - Blepharospasm [None]
  - Dyskinesia [None]
  - Gait disturbance [None]
  - Posturing [None]
  - Dyskinesia [None]
